FAERS Safety Report 9240948 (Version 1)
Quarter: 2013Q2

REPORT INFORMATION
  Report Type: Spontaneous
  Country: US (occurrence: US)
  Receive Date: 20130418
  Receipt Date: 20130418
  Transmission Date: 20140414
  Serious: Yes (Other)
  Sender: FDA-Public Use
  Company Number: US-SANOFI-AVENTIS-2012SA071832

PATIENT
  Age: 73 Year
  Sex: Female

DRUGS (5)
  1. ENOXAPARIN SODIUM - WINTHROP [Suspect]
     Indication: PROPHYLAXIS
     Route: 065
     Dates: start: 2012, end: 2012
  2. ENOXAPARIN SODIUM - WINTHROP [Suspect]
     Indication: PROPHYLAXIS
     Route: 065
     Dates: start: 2012, end: 2012
  3. ENOXAPARIN SODIUM - WINTHROP [Suspect]
     Indication: PROPHYLAXIS
     Route: 065
     Dates: start: 20121005
  4. ENOXAPARIN SODIUM - WINTHROP [Suspect]
     Indication: PROPHYLAXIS
     Route: 065
     Dates: start: 20121005
  5. COUMADIN [Concomitant]
     Dates: start: 1965

REACTIONS (3)
  - Injection site haemorrhage [Unknown]
  - Injection site bruising [Unknown]
  - Injection site pain [Unknown]
